FAERS Safety Report 6812529-7 (Version None)
Quarter: 2010Q3

REPORT INFORMATION
  Report Type: 
  Country: None (occurrence: None)
  Receive Date: 20100701
  Receipt Date: 20100623
  Transmission Date: 20110219
  Serious: Yes (Other)
  Sender: FDA-Public Use
  Company Number: US-PFIZER INC-2010068983

PATIENT
  Sex: Female
  Weight: 58.957 kg

DRUGS (6)
  1. CELEBREX [Suspect]
     Indication: ARTHRITIS
     Dosage: 200 MG, 2X/DAY
     Route: 048
     Dates: start: 20000101
  2. CELEBREX [Suspect]
     Indication: CARPAL TUNNEL SYNDROME
     Dosage: 400 MG, UNK
     Route: 048
     Dates: start: 20000101
  3. MOTRIN [Suspect]
     Dosage: UNK
     Route: 065
  4. NAPROXEN SODIUM [Suspect]
     Dosage: UNK
     Route: 065
  5. ACETYLSALICYLIC ACID [Suspect]
     Dosage: UNK
     Route: 065
  6. RELAFEN [Suspect]
     Dosage: UNK
     Route: 065

REACTIONS (3)
  - DRUG INTOLERANCE [None]
  - HIP ARTHROPLASTY [None]
  - RASH MACULAR [None]
